FAERS Safety Report 13746676 (Version 1)
Quarter: 2017Q3

REPORT INFORMATION
  Report Type: Spontaneous
  Country: GB (occurrence: GB)
  Receive Date: 20170712
  Receipt Date: 20170712
  Transmission Date: 20171127
  Serious: Yes (Death, Hospitalization)
  Sender: FDA-Public Use
  Company Number: GB-TEVA-771738ACC

PATIENT
  Age: 46 Year
  Sex: Male

DRUGS (7)
  1. OLANZAPINE. [Suspect]
     Active Substance: OLANZAPINE
     Indication: ACUTE STRESS DISORDER
     Dosage: 10 MILLIGRAM DAILY;
     Route: 048
     Dates: start: 20170426, end: 20170507
  2. PARACETAMOL [Concomitant]
     Active Substance: ACETAMINOPHEN
     Dosage: 4 GRAM DAILY; NEWLY STARTED
     Dates: start: 20170426
  3. OXYCODONE [Concomitant]
     Active Substance: OXYCODONE
     Dosage: 40 MILLIGRAM DAILY; NEWLY STARTED.
     Dates: start: 20170426
  4. CELECOXIB. [Suspect]
     Active Substance: CELECOXIB
     Indication: PAIN
     Dosage: 400 MILLIGRAM DAILY;
     Route: 048
     Dates: start: 20170426, end: 20170507
  5. SERTRALINE [Concomitant]
     Active Substance: SERTRALINE HYDROCHLORIDE
     Dosage: 150 MILLIGRAM DAILY;
  6. OMEPRAZOLE. [Concomitant]
     Active Substance: OMEPRAZOLE
     Dosage: 20 MILLIGRAM DAILY;
  7. OXYCODONE [Concomitant]
     Active Substance: OXYCODONE
     Dosage: 3 HOURLY. NEWLY STARTED.
     Dates: start: 20170426

REACTIONS (4)
  - Chest pain [Unknown]
  - Respiratory failure [Not Recovered/Not Resolved]
  - Pulmonary embolism [Fatal]
  - Syncope [Recovered/Resolved]

NARRATIVE: CASE EVENT DATE: 20170503
